FAERS Safety Report 24149560 (Version 1)
Quarter: 2024Q3

REPORT INFORMATION
  Report Type: Spontaneous
  Country: US (occurrence: US)
  Receive Date: 20240730
  Receipt Date: 20240730
  Transmission Date: 20241017
  Serious: Yes (Hospitalization)
  Sender: ASPIRO PHARMA
  Company Number: US-AMAROX PHARMA-ASP2024US02463

PATIENT
  Age: 86 Year
  Sex: Female

DRUGS (3)
  1. DAPTOMYCIN [Suspect]
     Active Substance: DAPTOMYCIN
     Indication: Product used for unknown indication
     Dosage: UNK
     Route: 065
  2. CEFTRIAXONE [Concomitant]
     Active Substance: CEFTRIAXONE\CEFTRIAXONE SODIUM
     Indication: Product used for unknown indication
     Dosage: UNK
     Route: 065
  3. SULFAMETHOXAZOLE\TRIMETHOPRIM [Concomitant]
     Active Substance: SULFAMETHOXAZOLE\TRIMETHOPRIM
     Indication: Anti-infective therapy
     Dosage: UNK
     Route: 065

REACTIONS (3)
  - Pulmonary toxicity [Recovering/Resolving]
  - Eosinophilic pneumonia [Recovering/Resolving]
  - Acute respiratory failure [Recovering/Resolving]
